FAERS Safety Report 7615831-4 (Version None)
Quarter: 2011Q3

REPORT INFORMATION
  Report Type: 
  Country: None (occurrence: None)
  Receive Date: 20110711
  Receipt Date: 20110624
  Transmission Date: 20111222
  Serious: Yes (Death, Hospitalization, Other)
  Sender: FDA-Public Use
  Company Number: 2011MA008039

PATIENT
  Age: 81 Year
  Sex: Male

DRUGS (2)
  1. TICLOPIDINE HYDROCHLORIDE [Suspect]
     Indication: CAROTID ARTERY STENOSIS
     Dosage: 250 MG QD;
     Dates: start: 20030101, end: 20070516
  2. ASPIRIN [Suspect]
     Indication: CAROTID ARTERY STENOSIS
     Dosage: 81 MG, QD;
     Dates: start: 20030101, end: 20070516

REACTIONS (14)
  - ANAEMIA [None]
  - DRUG INEFFECTIVE [None]
  - PERICARDIAL EFFUSION [None]
  - CARDIAC FAILURE CONGESTIVE [None]
  - LUPUS-LIKE SYNDROME [None]
  - MUSCULAR WEAKNESS [None]
  - PLEURAL EFFUSION [None]
  - PNEUMONIA [None]
  - SEPSIS [None]
  - ARTHRALGIA [None]
  - PYREXIA [None]
  - PAIN [None]
  - PROTEINURIA [None]
  - MYALGIA [None]
